FAERS Safety Report 5377788-9 (Version None)
Quarter: 2007Q3

REPORT INFORMATION
  Report Type: 
  Country: None (occurrence: None)
  Receive Date: 20070703
  Receipt Date: 20070626
  Transmission Date: 20080115
  Serious: Yes (Death, Hospitalization)
  Sender: FDA-Public Use
  Company Number: FR-GENENTECH-243661

PATIENT
  Age: 62 Year
  Sex: Male

DRUGS (2)
  1. MABTHERA [Suspect]
     Indication: CHONDRITIS
     Dosage: 375 MG/M2, UNK
     Dates: start: 20060101
  2. CORTICOSTEROID (UNK INGREDIENTS) [Concomitant]
     Indication: CHONDRITIS
     Dosage: 20 MG, QD

REACTIONS (2)
  - INFLUENZA [None]
  - SEPTIC SHOCK [None]
